FAERS Safety Report 25034066 (Version 2)
Quarter: 2025Q1

REPORT INFORMATION
  Report Type: Spontaneous
  Country: PY (occurrence: PY)
  Receive Date: 20250304
  Receipt Date: 20250327
  Transmission Date: 20250409
  Serious: Yes (Hospitalization)
  Sender: ROCHE
  Company Number: PY-ROCHE-10000216617

PATIENT
  Age: 33 Year
  Sex: Female

DRUGS (9)
  1. ACTEMRA [Suspect]
     Active Substance: TOCILIZUMAB
     Indication: Rheumatoid arthritis
     Dosage: DOSE: 162MG/0,9ML
     Route: 058
     Dates: start: 20240522
  2. METHOTREXATE [Concomitant]
     Active Substance: METHOTREXATE
     Indication: Rheumatoid arthritis
  3. PREDNISONE [Concomitant]
     Active Substance: PREDNISONE
     Indication: Erythema
  4. PREDNISONE [Concomitant]
     Active Substance: PREDNISONE
  5. PREDNISONE [Concomitant]
     Active Substance: PREDNISONE
  6. AZATHIOPRINE [Concomitant]
     Active Substance: AZATHIOPRINE
  7. LEFLUNOMIDE [Concomitant]
     Active Substance: LEFLUNOMIDE
  8. HYDROXYCHLOROQUINE [Concomitant]
     Active Substance: HYDROXYCHLOROQUINE
  9. DEXAMETHASONE AND DICLOFENAC [Concomitant]

REACTIONS (2)
  - Erythema [Recovering/Resolving]
  - Arthritis [Not Recovered/Not Resolved]

NARRATIVE: CASE EVENT DATE: 20240901
